FAERS Safety Report 10312759 (Version 2)
Quarter: 2014Q3

REPORT INFORMATION
  Report Type: Spontaneous
  Country: FR (occurrence: None)
  Receive Date: 20140716
  Receipt Date: 20140814
  Transmission Date: 20150326
  Serious: Yes (Hospitalization)
  Sender: FDA-Public Use
  Company Number: FK201402684

PATIENT
  Age: 57 Year
  Sex: Female

DRUGS (12)
  1. GENTAMICIN PANPHARMA(GENTAMICIN SULFATE) [Concomitant]
  2. STAGID (METFORMIN EMBONATE) [Concomitant]
     Active Substance: METFORMIN PAMOATE
  3. PIPERACILLIN AND TAZOBACTAM [Suspect]
     Active Substance: PIPERACILLIN SODIUM\TAZOBACTAM SODIUM
     Indication: ANTIBIOTIC THERAPY
     Dates: start: 20130605, end: 20130610
  4. KARDEGIC(ACETYLSALICYLATE LYSINE) [Concomitant]
  5. TARGOCID(TEICOPLANIN) [Concomitant]
  6. ZYVOXID(LINEZOLID) [Concomitant]
  7. FOSFOCINA(FOSFOMYCIN) [Concomitant]
  8. VANCOMYCINE [Suspect]
     Active Substance: VANCOMYCIN
     Indication: ANTIBIOTIC THERAPY
     Dates: start: 20130605, end: 20130608
  9. CUBICIN [Concomitant]
     Active Substance: DAPTOMYCIN
  10. DALACINE(CLINDAMYCIN HYDROCHLORIDE) [Concomitant]
  11. RIFADINE [Suspect]
     Active Substance: RIFAMPIN
     Indication: ANTIBIOTIC THERAPY
     Dates: start: 20130605
  12. CEFTRIAXONE(CEFTRIAXONE) [Concomitant]

REACTIONS (4)
  - Drug reaction with eosinophilia and systemic symptoms [None]
  - Renal failure acute [None]
  - Respiratory distress [None]
  - Acute pulmonary oedema [None]

NARRATIVE: CASE EVENT DATE: 20140610
